FAERS Safety Report 9426470 (Version 1)
Quarter: 2013Q3

REPORT INFORMATION
  Report Type: Spontaneous
  Country: US (occurrence: US)
  Receive Date: 20130730
  Receipt Date: 20130730
  Transmission Date: 20140515
  Serious: Yes (Hospitalization, Other)
  Sender: FDA-Public Use
  Company Number: US-CELGENEUS-163-20785-13032783

PATIENT
  Age: 47 Year
  Sex: Male

DRUGS (16)
  1. THALOMID [Suspect]
     Indication: PLASMA CELL MYELOMA
     Dosage: 200 MILLIGRAM
     Route: 048
     Dates: start: 201203, end: 2012
  2. THALOMID [Suspect]
     Dosage: 200 MILLIGRAM
     Route: 048
     Dates: start: 20130129, end: 20130211
  3. VELCADE [Concomitant]
     Indication: PLASMA CELL MYELOMA
     Route: 065
     Dates: start: 2012
  4. VELCADE [Concomitant]
     Route: 065
     Dates: start: 201301
  5. DEXAMETHASONE [Concomitant]
     Indication: PLASMA CELL MYELOMA
     Route: 065
     Dates: start: 2012
  6. DEXAMETHASONE [Concomitant]
     Route: 065
     Dates: start: 201301
  7. CYTOXAN [Concomitant]
     Indication: PRODUCT USED FOR UNKNOWN INDICATION
     Route: 065
  8. PREDNISONE [Concomitant]
     Indication: PRODUCT USED FOR UNKNOWN INDICATION
     Route: 065
  9. VALPROIC ACID [Concomitant]
     Indication: PRODUCT USED FOR UNKNOWN INDICATION
     Route: 065
  10. BIAXIN [Concomitant]
     Indication: PRODUCT USED FOR UNKNOWN INDICATION
     Route: 065
  11. OXYCONTIN [Concomitant]
     Indication: PAIN
     Route: 065
  12. OXY IR [Concomitant]
     Indication: PAIN
     Route: 065
  13. ATIVAN [Concomitant]
     Indication: PAIN
     Route: 065
  14. XANAX [Concomitant]
     Indication: PAIN
     Route: 065
  15. IV FLUIDS [Concomitant]
     Indication: PRODUCT USED FOR UNKNOWN INDICATION
     Route: 041
  16. CALCITONIN [Concomitant]
     Indication: PRODUCT USED FOR UNKNOWN INDICATION
     Route: 065

REACTIONS (6)
  - Hypoxia [Unknown]
  - Hypercalcaemia [Recovered/Resolved]
  - Transaminases increased [Unknown]
  - Pancytopenia [Unknown]
  - Renal failure acute [Not Recovered/Not Resolved]
  - Plasma cell myeloma [Unknown]
